FAERS Safety Report 9733986 (Version 2)
Quarter: 2013Q4

REPORT INFORMATION
  Report Type: Spontaneous
  Country: US (occurrence: US)
  Receive Date: 20131205
  Receipt Date: 20131230
  Transmission Date: 20140711
  Serious: Yes (Other)
  Sender: FDA-Public Use
  Company Number: CHPA2013US017646

PATIENT
  Age: 76 Year
  Sex: Female

DRUGS (4)
  1. GAS-X CHEWABLE TABLETS UNKNOWN [Suspect]
     Indication: FLATULENCE
     Dosage: UNK, UNK
  2. GAS-X ULTRA STRENGTH [Suspect]
     Indication: FLATULENCE
     Dosage: UNK, UNK
     Route: 048
  3. LIVALO [Suspect]
     Indication: BLOOD CHOLESTEROL
     Dosage: UNK, UNK
     Dates: start: 201307, end: 201308
  4. CRESTOR [Suspect]
     Indication: BLOOD CHOLESTEROL INCREASED
     Dosage: UNK, UNK
     Dates: start: 2009, end: 2012

REACTIONS (8)
  - Back injury [Recovered/Resolved]
  - Back pain [Recovering/Resolving]
  - Fall [Recovering/Resolving]
  - Gait disturbance [Recovered/Resolved]
  - Blood cholesterol increased [Not Recovered/Not Resolved]
  - Feeling abnormal [Recovered/Resolved]
  - Chest pain [Recovering/Resolving]
  - Pain [Recovering/Resolving]
